FAERS Safety Report 23073981 (Version 1)
Quarter: 2023Q4

REPORT INFORMATION
  Report Type: Spontaneous
  Country: US (occurrence: US)
  Receive Date: 20231017
  Receipt Date: 20231017
  Transmission Date: 20240109
  Serious: No
  Sender: FDA-Public Use
  Company Number: US-002147023-NVSC2023US195633

PATIENT

DRUGS (16)
  1. JAKAFI [Suspect]
     Active Substance: RUXOLITINIB
     Indication: Acute graft versus host disease in skin
     Dosage: UNK
     Route: 065
  2. JAKAFI [Suspect]
     Active Substance: RUXOLITINIB
     Indication: Acute graft versus host disease in intestine
  3. JAKAFI [Suspect]
     Active Substance: RUXOLITINIB
     Indication: Graft versus host disease in gastrointestinal tract
  4. JAKAFI [Suspect]
     Active Substance: RUXOLITINIB
     Indication: Stem cell transplant
  5. BEGELOMAB [Concomitant]
     Active Substance: BEGELOMAB
     Indication: Stem cell transplant
     Dosage: UNK
     Route: 065
  6. BEGELOMAB [Concomitant]
     Active Substance: BEGELOMAB
     Indication: Acute graft versus host disease in skin
  7. BEGELOMAB [Concomitant]
     Active Substance: BEGELOMAB
     Indication: Acute graft versus host disease in intestine
  8. BEGELOMAB [Concomitant]
     Active Substance: BEGELOMAB
     Indication: Graft versus host disease in gastrointestinal tract
  9. INFLIXIMAB [Concomitant]
     Active Substance: INFLIXIMAB
     Indication: Stem cell transplant
     Dosage: UNK
     Route: 065
  10. INFLIXIMAB [Concomitant]
     Active Substance: INFLIXIMAB
     Indication: Acute graft versus host disease in skin
  11. INFLIXIMAB [Concomitant]
     Active Substance: INFLIXIMAB
     Indication: Acute graft versus host disease in intestine
  12. INFLIXIMAB [Concomitant]
     Active Substance: INFLIXIMAB
     Indication: Graft versus host disease in gastrointestinal tract
  13. METHYLPREDNISOLONE [Concomitant]
     Active Substance: METHYLPREDNISOLONE
     Indication: Stem cell transplant
     Dosage: UNK
     Route: 065
  14. METHYLPREDNISOLONE [Concomitant]
     Active Substance: METHYLPREDNISOLONE
     Indication: Acute graft versus host disease in skin
  15. METHYLPREDNISOLONE [Concomitant]
     Active Substance: METHYLPREDNISOLONE
     Indication: Acute graft versus host disease in intestine
  16. METHYLPREDNISOLONE [Concomitant]
     Active Substance: METHYLPREDNISOLONE
     Indication: Graft versus host disease in gastrointestinal tract

REACTIONS (1)
  - Product use issue [Unknown]
